FAERS Safety Report 12978002 (Version 4)
Quarter: 2017Q4

REPORT INFORMATION
  Report Type: Report from Study
  Country: JP (occurrence: JP)
  Receive Date: 20161128
  Receipt Date: 20171004
  Transmission Date: 20180320
  Serious: Yes (Other)
  Sender: FDA-Public Use
  Company Number: JP-ASTELLAS-2010JP006859

PATIENT
  Age: 26 Year
  Sex: Female
  Weight: 52 kg

DRUGS (63)
  1. BREDININ [Suspect]
     Active Substance: MIZORIBINE
     Route: 048
     Dates: start: 20101119, end: 20120910
  2. IMURAN [Suspect]
     Active Substance: AZATHIOPRINE
     Route: 048
     Dates: start: 20121219, end: 20160929
  3. INTEBAN [Concomitant]
     Active Substance: INDOMETHACIN
     Indication: EPICONDYLITIS
     Dosage: UNK UNK, UNKNOWN FREQ.
     Route: 061
     Dates: start: 20110207, end: 20110214
  4. CALONAL [Concomitant]
     Active Substance: ACETAMINOPHEN
     Route: 048
     Dates: start: 20151211, end: 20160122
  5. MAGMITT [Concomitant]
     Active Substance: MAGNESIUM OXIDE
     Indication: CONSTIPATION
     Route: 048
     Dates: start: 20150712
  6. PREDONINE [Suspect]
     Active Substance: PREDNISOLONE
     Route: 048
     Dates: start: 20080515, end: 20081008
  7. PREDONINE [Suspect]
     Active Substance: PREDNISOLONE
     Route: 048
     Dates: start: 20091106, end: 20100107
  8. IMURAN [Suspect]
     Active Substance: AZATHIOPRINE
     Indication: LUPUS NEPHRITIS
     Route: 048
     Dates: start: 20120911, end: 20121120
  9. BAKTAR [Suspect]
     Active Substance: SULFAMETHOXAZOLE\TRIMETHOPRIM
     Dosage: UNK UNK, UNKNOWN FREQ.
     Route: 048
     Dates: start: 20160427
  10. GLAKAY [Concomitant]
     Active Substance: MENATETRENONE
     Route: 048
     Dates: start: 20160427
  11. ZANTAC [Concomitant]
     Active Substance: RANITIDINE HYDROCHLORIDE
     Indication: PROPHYLAXIS
     Route: 048
  12. GASCON [Concomitant]
     Active Substance: DIMETHICONE
     Indication: FUNCTIONAL GASTROINTESTINAL DISORDER
     Route: 048
     Dates: start: 20111114, end: 20111220
  13. OKINAZOLE [Concomitant]
     Indication: VAGINAL INFECTION
     Route: 067
     Dates: start: 20100616, end: 20100616
  14. DICLOFENAC [Concomitant]
     Active Substance: DICLOFENAC
     Indication: PRODUCT USED FOR UNKNOWN INDICATION
     Route: 048
     Dates: start: 20160125
  15. PREDONINE [Suspect]
     Active Substance: PREDNISOLONE
     Route: 048
     Dates: start: 20100108, end: 20100422
  16. BREDININ [Suspect]
     Active Substance: MIZORIBINE
     Route: 048
     Dates: start: 20100903, end: 20101118
  17. PERSANTINE [Concomitant]
     Active Substance: DIPYRIDAMOLE
     Indication: LUPUS NEPHRITIS
     Route: 048
     Dates: end: 20100218
  18. MUCOSTA [Concomitant]
     Active Substance: REBAMIPIDE
     Indication: EPICONDYLITIS
     Route: 048
     Dates: start: 20110207, end: 20110214
  19. EDIROL [Concomitant]
     Active Substance: ELDECALCITOL
     Dosage: 0.75 ?G, ONCE DAILY
     Route: 048
     Dates: start: 20160427
  20. LOXONIN [Concomitant]
     Active Substance: LOXOPROFEN SODIUM
     Indication: ENTEROCOLITIS
     Route: 048
     Dates: start: 20110221, end: 20110221
  21. ERYTHROCIN                         /00020901/ [Concomitant]
     Active Substance: ERYTHROMYCIN ETHYLSUCCINATE
     Route: 048
     Dates: start: 20150529, end: 20151006
  22. ZITHROMAC [Concomitant]
     Active Substance: AZITHROMYCIN DIHYDRATE
     Indication: PRODUCT USED FOR UNKNOWN INDICATION
     Route: 048
     Dates: start: 20160123, end: 20160123
  23. PREDONINE [Suspect]
     Active Substance: PREDNISOLONE
     Route: 048
     Dates: start: 20081009, end: 20090114
  24. PREDONINE [Suspect]
     Active Substance: PREDNISOLONE
     Route: 048
     Dates: start: 20101008, end: 20130212
  25. BREDININ [Suspect]
     Active Substance: MIZORIBINE
     Route: 048
     Dates: start: 20100623, end: 20100902
  26. BAKTAR [Suspect]
     Active Substance: SULFAMETHOXAZOLE\TRIMETHOPRIM
     Indication: PROPHYLAXIS
     Route: 048
     Dates: end: 20150705
  27. GLAKAY [Concomitant]
     Active Substance: MENATETRENONE
     Indication: PROPHYLAXIS
     Route: 048
     Dates: end: 20150705
  28. TAKEPRON [Concomitant]
     Active Substance: LANSOPRAZOLE
     Indication: FUNCTIONAL GASTROINTESTINAL DISORDER
     Route: 048
     Dates: start: 20111020, end: 20111105
  29. PREDONINE [Suspect]
     Active Substance: PREDNISOLONE
     Indication: LUPUS NEPHRITIS
     Route: 048
     Dates: end: 20080514
  30. BREDININ [Suspect]
     Active Substance: MIZORIBINE
     Route: 048
     Dates: start: 20100108, end: 20100622
  31. KLARICID                           /00984601/ [Interacting]
     Active Substance: CLARITHROMYCIN
     Indication: ACUTE SINUSITIS
     Route: 048
     Dates: start: 20120815, end: 20120822
  32. KLARICID                           /00984601/ [Interacting]
     Active Substance: CLARITHROMYCIN
     Indication: DRUG LEVEL INCREASED
     Dosage: UNK UNK, UNKNOWN FREQ.
     Route: 048
     Dates: start: 20140509, end: 20140522
  33. SELBEX [Concomitant]
     Active Substance: TEPRENONE
     Indication: PROPHYLAXIS
     Route: 048
  34. HYPEN                              /00340101/ [Concomitant]
     Indication: EPICONDYLITIS
     Route: 048
     Dates: start: 20110207, end: 20110214
  35. CIPROXAN                           /00697202/ [Concomitant]
     Active Substance: CIPROFLOXACIN
     Indication: ENTEROCOLITIS
     Route: 048
     Dates: start: 20110221, end: 20110225
  36. LUTEONIN [Concomitant]
     Route: 048
     Dates: start: 20151208, end: 20160122
  37. SAWACILLIN [Concomitant]
     Active Substance: AMOXICILLIN
     Indication: PRODUCT USED FOR UNKNOWN INDICATION
     Route: 048
     Dates: start: 20160125, end: 20160129
  38. PREDONINE [Suspect]
     Active Substance: PREDNISOLONE
     Route: 048
     Dates: start: 20100423, end: 20100622
  39. PREDONINE [Suspect]
     Active Substance: PREDNISOLONE
     Route: 048
     Dates: start: 20130213
  40. BREDININ [Suspect]
     Active Substance: MIZORIBINE
     Indication: LUPUS NEPHRITIS
     Route: 048
     Dates: start: 20091016, end: 20100107
  41. IMURAN [Suspect]
     Active Substance: AZATHIOPRINE
     Indication: SYSTEMIC LUPUS ERYTHEMATOSUS
     Route: 048
     Dates: start: 20121121, end: 20121218
  42. ALFAROL [Concomitant]
     Active Substance: ALFACALCIDOL
     Indication: PRODUCT USED FOR UNKNOWN INDICATION
     Route: 048
     Dates: end: 20120426
  43. AMETHYST [Concomitant]
     Active Substance: ETHINYL ESTRADIOL\LEVONORGESTREL
     Indication: ACUTE SINUSITIS
     Route: 048
     Dates: start: 20120815, end: 20120822
  44. PLAQUENIL [Concomitant]
     Active Substance: HYDROXYCHLOROQUINE SULFATE
     Indication: LUPUS NEPHRITIS
     Route: 048
     Dates: start: 20160916
  45. PLAQUENIL [Concomitant]
     Active Substance: HYDROXYCHLOROQUINE SULFATE
     Route: 048
     Dates: start: 20160916
  46. POSTERISAN FORTE                   /01567801/ [Concomitant]
     Indication: HAEMORRHOIDS
     Route: 061
     Dates: start: 20160125, end: 20160129
  47. TACROLIMUS. [Suspect]
     Active Substance: TACROLIMUS
     Indication: LUPUS NEPHRITIS
     Route: 048
     Dates: start: 20071009
  48. PURSENNID                          /00142207/ [Concomitant]
     Active Substance: SENNA LEAF
     Indication: CONSTIPATION
     Dosage: UNK UNK, UNKNOWN FREQ.
     Route: 048
     Dates: end: 20080802
  49. TAKEPRON [Concomitant]
     Active Substance: LANSOPRAZOLE
     Route: 048
     Dates: start: 20160427
  50. GASMOTIN [Concomitant]
     Active Substance: MOSAPRIDE CITRATE
     Indication: FUNCTIONAL GASTROINTESTINAL DISORDER
     Route: 048
     Dates: start: 20111114, end: 20111220
  51. COSPANON [Concomitant]
     Active Substance: FLOPROPIONE
     Indication: FUNCTIONAL GASTROINTESTINAL DISORDER
     Route: 048
     Dates: start: 20111106, end: 20111114
  52. ERYTHROCIN                         /00020901/ [Concomitant]
     Active Substance: ERYTHROMYCIN ETHYLSUCCINATE
     Indication: DRUG LEVEL INCREASED
     Route: 048
     Dates: end: 20150528
  53. LUTEONIN [Concomitant]
     Indication: THREATENED LABOUR
     Route: 048
     Dates: start: 20151107, end: 20151111
  54. FERROUS SODIUM CITRATE [Concomitant]
     Active Substance: SODIUM FERROUS CITRATE
     Indication: IRON DEFICIENCY ANAEMIA
     Route: 048
     Dates: start: 20160126, end: 20160202
  55. PREDONINE [Suspect]
     Active Substance: PREDNISOLONE
     Route: 048
     Dates: start: 20090115, end: 20091105
  56. PREDONINE [Suspect]
     Active Substance: PREDNISOLONE
     Route: 048
     Dates: start: 20100623, end: 20101007
  57. EDIROL [Concomitant]
     Active Substance: ELDECALCITOL
     Indication: PRODUCT USED FOR UNKNOWN INDICATION
     Dosage: 0.75 ?G, ONCE DAILY
     Route: 048
     Dates: start: 20120427, end: 20150705
  58. TAKEPRON [Concomitant]
     Active Substance: LANSOPRAZOLE
     Indication: PROPHYLAXIS
     Route: 048
     Dates: end: 20150705
  59. NEXIUM [Concomitant]
     Active Substance: ESOMEPRAZOLE MAGNESIUM
     Indication: FUNCTIONAL GASTROINTESTINAL DISORDER
     Route: 048
     Dates: start: 20111106, end: 20111220
  60. HERBAL NOS [Concomitant]
     Active Substance: HERBALS
     Indication: FUNCTIONAL GASTROINTESTINAL DISORDER
     Route: 048
     Dates: start: 20111114, end: 20111220
  61. PL [Concomitant]
     Active Substance: ACETAMINOPHEN\CAFFEINE\PROMETHAZINE\SALICYLAMIDE
     Indication: UPPER RESPIRATORY TRACT INFLAMMATION
     Route: 048
     Dates: start: 20111208, end: 20111215
  62. BIOFERMIN                          /01617201/ [Concomitant]
     Active Substance: BACILLUS SUBTILIS\LACTOBACILLUS ACIDOPHILUS\STREPTOCOCCUS FAECAIS
     Indication: ENTEROCOLITIS
     Route: 048
     Dates: start: 20110221, end: 20110228
  63. CALONAL [Concomitant]
     Active Substance: ACETAMINOPHEN
     Indication: ENTEROCOLITIS
     Route: 048
     Dates: start: 20110221, end: 20110222

REACTIONS (16)
  - White blood cell count decreased [Recovered/Resolved]
  - Premature delivery [Recovered/Resolved]
  - Systemic lupus erythematosus [Recovering/Resolving]
  - Hydronephrosis [Recovering/Resolving]
  - Epicondylitis [Recovering/Resolving]
  - Haemorrhoids [Recovered/Resolved]
  - Maternal exposure during pregnancy [Unknown]
  - Functional gastrointestinal disorder [Recovered/Resolved]
  - Upper respiratory tract inflammation [Recovered/Resolved]
  - Constipation [Recovered/Resolved]
  - Threatened labour [Recovered/Resolved]
  - Acute sinusitis [Recovered/Resolved]
  - Iron deficiency anaemia [Recovered/Resolved]
  - Vulvovaginal candidiasis [Recovered/Resolved]
  - Enterocolitis [Recovering/Resolving]
  - Drug interaction [Unknown]

NARRATIVE: CASE EVENT DATE: 20100613
